FAERS Safety Report 23723956 (Version 3)
Quarter: 2024Q3

REPORT INFORMATION
  Report Type: Spontaneous
  Country: CA (occurrence: CA)
  Receive Date: 20240409
  Receipt Date: 20240927
  Transmission Date: 20241016
  Serious: Yes (Other)
  Sender: TEVA
  Company Number: CA-TEVA-VS-3179662

PATIENT
  Age: 68 Year
  Sex: Male

DRUGS (15)
  1. CETIRIZINE HYDROCHLORIDE [Suspect]
     Active Substance: CETIRIZINE HYDROCHLORIDE
     Indication: Premedication
     Route: 065
  2. OXALIPLATIN [Suspect]
     Active Substance: OXALIPLATIN
     Indication: Colorectal cancer stage IV
     Route: 065
  3. OXALIPLATIN [Suspect]
     Active Substance: OXALIPLATIN
     Indication: Colorectal cancer stage IV
     Route: 065
  4. LEUCOVORIN [Suspect]
     Active Substance: LEUCOVORIN\LEUCOVORIN CALCIUM
     Indication: Colorectal cancer stage IV
     Route: 065
  5. FLUOROURACIL [Suspect]
     Active Substance: FLUOROURACIL
     Indication: Colorectal cancer stage IV
     Dosage: DOSE FORM: SOLUTION INTRAVENOUS, DESCRIPTION: FLUOROURACIL?INJECTION USP
     Route: 065
  6. ACETAMINOPHEN [Concomitant]
     Active Substance: ACETAMINOPHEN
     Indication: Premedication
     Route: 065
  7. CETIRIZINE [Concomitant]
     Active Substance: CETIRIZINE HYDROCHLORIDE
     Indication: Product used for unknown indication
     Route: 065
  8. DEXAMETHASONE [Suspect]
     Active Substance: DEXAMETHASONE
     Indication: Premedication
     Route: 065
  9. FAMOTIDINE [Concomitant]
     Active Substance: FAMOTIDINE
     Indication: Premedication
     Route: 065
  10. IBUPROFEN [Suspect]
     Active Substance: IBUPROFEN
     Indication: Product used for unknown indication
     Route: 065
  11. ONDANSETRON [Suspect]
     Active Substance: ONDANSETRON
     Indication: Premedication
     Route: 065
  12. FLUOROURACIL [Concomitant]
     Active Substance: FLUOROURACIL
     Indication: Colorectal cancer stage IV
     Route: 065
  13. LEUCOVORIN [Concomitant]
     Active Substance: LEUCOVORIN\LEUCOVORIN CALCIUM
     Indication: Colorectal cancer stage IV
     Route: 065
  14. ACETAMINOPHEN [Suspect]
     Active Substance: ACETAMINOPHEN
     Indication: Premedication
     Route: 065
  15. SODIUM CHLORIDE [Concomitant]
     Active Substance: SODIUM CHLORIDE
     Indication: Premedication
     Route: 065

REACTIONS (3)
  - Cytokine release syndrome [Recovered/Resolved]
  - Off label use [Recovered/Resolved]
  - Type I hypersensitivity [Recovered/Resolved]
